FAERS Safety Report 24119755 (Version 1)
Quarter: 2024Q3

REPORT INFORMATION
  Report Type: Report from Study
  Country: US (occurrence: US)
  Receive Date: 20240722
  Receipt Date: 20240722
  Transmission Date: 20241017
  Serious: Yes (Other)
  Sender: JOHNSON AND JOHNSON
  Company Number: US-JNJFOC-20240748009

PATIENT
  Age: 44 Year
  Sex: Male

DRUGS (5)
  1. SPRAVATO [Suspect]
     Active Substance: ESKETAMINE
     Indication: Depression
     Dosage: 56 MG, 1 TOTAL DOSES
     Dates: start: 20240521, end: 20240521
  2. SPRAVATO [Suspect]
     Active Substance: ESKETAMINE
     Dosage: 84 MG, 1 TOTAL DOSES
     Dates: start: 20240524, end: 20240524
  3. SPRAVATO [Suspect]
     Active Substance: ESKETAMINE
     Dosage: 56 MG, 1 TOTAL DOSES
     Dates: start: 20240528, end: 20240528
  4. SPRAVATO [Suspect]
     Active Substance: ESKETAMINE
     Dosage: 84MG, 8 TOTAL DOSES
     Dates: start: 20240531, end: 20240705
  5. SPRAVATO [Suspect]
     Active Substance: ESKETAMINE
     Dosage: 84MG, 1 TOTAL DOSES
     Dates: start: 20240712, end: 20240712

REACTIONS (1)
  - Vomiting [Recovered/Resolved]

NARRATIVE: CASE EVENT DATE: 20240712
